FAERS Safety Report 7902413-X (Version None)
Quarter: 2011Q4

REPORT INFORMATION
  Report Type: 
  Country: None (occurrence: None)
  Receive Date: 20111108
  Receipt Date: 20111104
  Transmission Date: 20120403
  Serious: Yes (Hospitalization)
  Sender: FDA-Public Use
  Company Number: FR-B.I. PHARMACEUTICALS,INC./RIDGEFIELD-2011-FF-00996FF

PATIENT
  Sex: Female
  Weight: 54 kg

DRUGS (5)
  1. PIASCLEDINE [Concomitant]
     Route: 048
  2. FENOFIBRATE [Concomitant]
     Route: 048
  3. PRADAXA [Suspect]
     Indication: HIP ARTHROPLASTY
  4. VALSARTAN  AND HYDROCHLOROTHIAZIDE [Concomitant]
     Route: 048
  5. PRADAXA [Suspect]
     Indication: THROMBOSIS PROPHYLAXIS
     Dosage: 150 MG
     Route: 048

REACTIONS (3)
  - THROMBOPHLEBITIS [None]
  - CHEST PAIN [None]
  - PULMONARY EMBOLISM [None]
